FAERS Safety Report 9493655 (Version 2)
Quarter: 2014Q1

REPORT INFORMATION
  Report Type: Report from Study
  Country: US (occurrence: US)
  Receive Date: 20130902
  Receipt Date: 20140304
  Transmission Date: 20141002
  Serious: Yes (Hospitalization, Other)
  Sender: FDA-Public Use
  Company Number: US-ROCHE-1267284

PATIENT
  Age: 39 Year
  Sex: Female
  Weight: 66.28 kg

DRUGS (24)
  1. XELODA [Suspect]
     Indication: BREAST CANCER
     Route: 065
  2. HERCEPTIN [Suspect]
     Indication: HER-2 POSITIVE BREAST CANCER
     Route: 065
     Dates: end: 20100610
  3. HERCEPTIN [Suspect]
     Route: 065
     Dates: start: 20130111, end: 20130206
  4. KADCYLA [Suspect]
     Indication: HER-2 POSITIVE BREAST CANCER
     Dosage: SUBSEQUENT DOSES ON 22/MAY/2013 AND 15/JUN/2013
     Route: 042
     Dates: start: 20130322
  5. VALIUM [Suspect]
     Indication: PRODUCT USED FOR UNKNOWN INDICATION
     Dosage: 3-4 TIMES A DAY AS NEEDED
     Route: 065
  6. DILAUDID [Suspect]
     Indication: PAIN
     Route: 048
  7. ETHANOL [Suspect]
     Indication: PRODUCT USED FOR UNKNOWN INDICATION
     Route: 065
  8. ADRIAMYCIN [Suspect]
     Indication: PRODUCT USED FOR UNKNOWN INDICATION
     Route: 065
  9. CYTOXAN [Concomitant]
  10. TAXOTERE [Concomitant]
     Route: 065
     Dates: end: 20100324
  11. TYLENOL [Concomitant]
     Dosage: AS NEEDED
     Route: 065
  12. IBUPROFEN [Concomitant]
     Dosage: AS NEEDED
     Route: 065
  13. ULTRAM [Concomitant]
     Dosage: AS NEEDED
     Route: 065
  14. FARESTON [Concomitant]
     Route: 065
  15. CYMBALTA [Concomitant]
     Route: 065
  16. GRANISETRON [Concomitant]
     Route: 065
     Dates: start: 20130510, end: 20130510
  17. DEXAMETHASONE [Concomitant]
     Route: 065
     Dates: start: 20130510, end: 20130510
  18. MAGNESIUM CHLORIDE [Concomitant]
     Route: 048
  19. POTASSIUM CHLORIDE [Concomitant]
     Route: 042
  20. KEPPRA [Concomitant]
     Route: 048
  21. ALPRAZOLAM [Concomitant]
     Route: 048
  22. COREG [Concomitant]
     Route: 048
  23. PROMETHAZINE HCL [Concomitant]
     Route: 048
  24. ZOFRAN ODT [Concomitant]
     Route: 048

REACTIONS (17)
  - Constipation [Recovered/Resolved]
  - Cardiomyopathy [Recovered/Resolved]
  - Bone pain [Recovered/Resolved]
  - Nausea [Unknown]
  - Vomiting [Unknown]
  - Paranasal sinus hypersecretion [Unknown]
  - Dysgeusia [Unknown]
  - Metastases to skin [Unknown]
  - Nervous system disorder [Unknown]
  - Paraesthesia [Unknown]
  - Mobility decreased [Unknown]
  - Toothache [Unknown]
  - Hypoaesthesia [Unknown]
  - Pain in extremity [Unknown]
  - Sciatica [Unknown]
  - Fatigue [Unknown]
  - Asthenia [Unknown]
